FAERS Safety Report 24659333 (Version 5)
Quarter: 2025Q1

REPORT INFORMATION
  Report Type: Spontaneous
  Country: US (occurrence: US)
  Receive Date: 20241125
  Receipt Date: 20250122
  Transmission Date: 20250409
  Serious: No
  Sender: PFIZER
  Company Number: US-PFIZER INC-202400305249

PATIENT
  Age: 10 Year
  Sex: Male
  Weight: 30.839 kg

DRUGS (2)
  1. GENOTROPIN [Suspect]
     Active Substance: SOMATROPIN
     Indication: Growth hormone deficiency
     Dosage: 1.3 MG, DAILY (1.4MG AND THEN 1.2MG TO AVERAGE TO THE 1.3 MG/7 DAYS/WEEK)
     Dates: start: 2019
  2. GENOTROPIN [Suspect]
     Active Substance: SOMATROPIN
     Indication: Hypopituitarism
     Dosage: 1.4 MG, DAILY

REACTIONS (2)
  - Device power source issue [Unknown]
  - Expired device used [Unknown]
